FAERS Safety Report 10467231 (Version 1)
Quarter: 2014Q3

REPORT INFORMATION
  Report Type: Spontaneous
  Country: JP (occurrence: JP)
  Receive Date: 20140922
  Receipt Date: 20140922
  Transmission Date: 20150326
  Serious: Yes (Other)
  Sender: FDA-Public Use
  Company Number: PHHY2014JP122067

PATIENT
  Age: 55 Year
  Sex: Male

DRUGS (2)
  1. ZOLEDRONATE [Suspect]
     Active Substance: ZOLEDRONIC ACID
     Dosage: 1 MG, UNK
     Route: 033
  2. ZOLEDRONATE [Suspect]
     Active Substance: ZOLEDRONIC ACID
     Indication: GASTRIC CANCER
     Dosage: 1 MG, UNK
     Route: 042

REACTIONS (3)
  - Incorrect route of drug administration [Unknown]
  - Metastases to bone [Unknown]
  - Pyrexia [Unknown]
